FAERS Safety Report 15892927 (Version 1)
Quarter: 2019Q1

REPORT INFORMATION
  Report Type: Report from Study
  Country: US (occurrence: US)
  Receive Date: 20190130
  Receipt Date: 20190130
  Transmission Date: 20190417
  Serious: No
  Sender: FDA-Public Use
  Company Number: US-EXELIXIS-CABO-18015615

PATIENT
  Sex: Female
  Weight: 45.35 kg

DRUGS (10)
  1. CABOMETYX [Suspect]
     Active Substance: CABOZANTINIB S-MALATE
     Indication: METASTASIS
  2. RESTASIS [Concomitant]
     Active Substance: CYCLOSPORINE
  3. TRESIBA [Concomitant]
     Active Substance: INSULIN DEGLUDEC
  4. LEVEMIR [Concomitant]
     Active Substance: INSULIN DETEMIR
  5. DEXILANT [Concomitant]
     Active Substance: DEXLANSOPRAZOLE
  6. NOVOLOG [Concomitant]
     Active Substance: INSULIN ASPART
  7. AMLODIPINE [Concomitant]
     Active Substance: AMLODIPINE BESYLATE
  8. LOPERAMIDE [Concomitant]
     Active Substance: LOPERAMIDE
  9. CABOMETYX [Suspect]
     Active Substance: CABOZANTINIB S-MALATE
     Indication: RENAL CANCER
     Dosage: 60 MG, QD
     Route: 048
     Dates: start: 20180801, end: 20180830
  10. LEVOCARNITINE. [Concomitant]
     Active Substance: LEVOCARNITINE

REACTIONS (1)
  - Drug interaction [Unknown]
